FAERS Safety Report 8193394-5 (Version None)
Quarter: 2012Q1

REPORT INFORMATION
  Report Type: 
  Country: None (occurrence: None)
  Receive Date: 20120308
  Receipt Date: 20120227
  Transmission Date: 20120608
  Serious: Yes (Hospitalization)
  Sender: FDA-Public Use
  Company Number: US-ELI_LILLY_AND_COMPANY-US201011006186

PATIENT
  Sex: Female

DRUGS (6)
  1. FORTEO [Suspect]
     Dosage: 20 UG, QD
  2. IBUPROFEN [Concomitant]
  3. VITAMIN TAB [Concomitant]
  4. FORTEO [Suspect]
     Dosage: 20 UG, QD
  5. FORTEO [Suspect]
     Dosage: 20 UG, QD
  6. FORTEO [Suspect]
     Indication: OSTEOPOROSIS
     Dosage: 20 UG, DAILY (1/D)

REACTIONS (14)
  - DIZZINESS [None]
  - BONE DENSITY ABNORMAL [None]
  - SCIATIC NERVE NEUROPATHY [None]
  - INCORRECT STORAGE OF DRUG [None]
  - APPETITE DISORDER [None]
  - LUMBAR SPINAL STENOSIS [None]
  - ASTHENIA [None]
  - MALAISE [None]
  - BALANCE DISORDER [None]
  - GASTROINTESTINAL INFECTION [None]
  - FATIGUE [None]
  - SCOLIOSIS [None]
  - DEHYDRATION [None]
  - MEDICATION ERROR [None]
